FAERS Safety Report 6133345-8 (Version None)
Quarter: 2009Q1

REPORT INFORMATION
  Report Type: 
  Country: None (occurrence: None)
  Receive Date: 20090324
  Receipt Date: 20090314
  Transmission Date: 20090719
  Serious: Yes (Other)
  Sender: FDA-Public Use
  Company Number: CHPA2009US06828

PATIENT
  Age: 86 Year
  Sex: Male

DRUGS (1)
  1. GAS-X EXTRA STR CHEWABLE TABLETS UNKNOWN (NCH)(SIMETHICONE) CHEWABLE T [Suspect]
     Indication: FLATULENCE
     Dosage: 125 MG, ONCE/SINGLE, ORAL
     Route: 048
     Dates: start: 20090314, end: 20090314

REACTIONS (1)
  - BLOOD GLUCOSE INCREASED [None]
